FAERS Safety Report 4984010-1 (Version None)
Quarter: 2006Q1

REPORT INFORMATION
  Report Type: 
  Country: None (occurrence: None)
  Receive Date: 20060301
  Receipt Date: 20060109
  Transmission Date: 20060701
  Serious: No
  Sender: FDA-Public Use
  Company Number: S06-USA-00168-01

PATIENT
  Age: 73 Year
  Sex: Male

DRUGS (6)
  1. NAMENDA [Suspect]
     Dosage: 5 MG QD PO
     Route: 048
     Dates: start: 20050801, end: 20050101
  2. NAMENDA [Suspect]
     Dosage: 5 MG BID PO
     Route: 048
     Dates: start: 20050101, end: 20050101
  3. NAMENDA [Suspect]
     Dosage: 15 MG QD PO
     Route: 048
     Dates: start: 20050101, end: 20050101
  4. NAMENDA [Suspect]
     Dosage: 10 MG BID PO
     Route: 048
     Dates: start: 20050101
  5. NEURONTIN [Concomitant]
  6. BLOOD PRESSURE MEDICATION (NOS) [Concomitant]

REACTIONS (1)
  - CONFUSIONAL STATE [None]
